FAERS Safety Report 9899892 (Version 2)
Quarter: 2014Q3

REPORT INFORMATION
  Report Type: Spontaneous
  Country: IT (occurrence: IT)
  Receive Date: 20140214
  Receipt Date: 20140722
  Transmission Date: 20150326
  Serious: Yes (Hospitalization, Other)
  Sender: FDA-Public Use
  Company Number: IT-BRISTOL-MYERS SQUIBB COMPANY-20130795

PATIENT
  Age: 77 Year
  Sex: Male

DRUGS (7)
  1. REPAGLINIDE. [Concomitant]
     Active Substance: REPAGLINIDE
     Indication: DIABETES MELLITUS
     Dosage: REPAGLINIDE SANDOZ TABS
     Route: 048
     Dates: start: 20130520, end: 20140105
  2. PANTOPRAZOLE [Concomitant]
     Active Substance: PANTOPRAZOLE SODIUM
     Dosage: TABS
     Route: 048
     Dates: start: 20120922, end: 20140105
  3. CORDARONE [Concomitant]
     Active Substance: AMIODARONE HYDROCHLORIDE
     Dosage: TABS
     Route: 048
     Dates: start: 20120922, end: 20140105
  4. TRIATEC [Concomitant]
     Active Substance: RAMIPRIL
     Dosage: TABS
     Route: 048
     Dates: start: 20130520, end: 20140105
  5. ATORVASTATIN [Concomitant]
     Active Substance: ATORVASTATIN
     Indication: HYPERCHOLESTEROLAEMIA
     Dosage: ATORVASTATIN SANDOZ 40 MG TABS
     Route: 048
     Dates: start: 20130520, end: 20140105
  6. METFORMIN [Concomitant]
     Active Substance: METFORMIN HYDROCHLORIDE
     Indication: DIABETES MELLITUS
     Dosage: ZUGLIMET 850 MG TABS
     Route: 048
     Dates: start: 20130520, end: 20140105
  7. COUMADIN [Suspect]
     Active Substance: WARFARIN SODIUM
     Indication: ATRIAL FIBRILLATION
     Dosage: DRUG INTERRUPTED ON 05JAN2014
     Route: 048
     Dates: start: 20130520, end: 20140105

REACTIONS (3)
  - Extravasation blood [Recovered/Resolved]
  - Skin haemorrhage [Recovered/Resolved]
  - Abscess [Recovered/Resolved]

NARRATIVE: CASE EVENT DATE: 20140105
